FAERS Safety Report 16702749 (Version 1)
Quarter: 2019Q3

REPORT INFORMATION
  Report Type: Spontaneous
  Country: US (occurrence: US)
  Receive Date: 20190814
  Receipt Date: 20190814
  Transmission Date: 20191004
  Serious: No
  Sender: FDA-Public Use
  Company Number: US-TEVA-2019-US-1091504

PATIENT
  Sex: Male

DRUGS (2)
  1. TRAZODONE HYDROCHLORIDE 50 MG [Suspect]
     Active Substance: TRAZODONE HYDROCHLORIDE
     Indication: SLEEP DISORDER
     Route: 065
  2. TRAZODONE HYDROCHLORIDE 50 MG [Suspect]
     Active Substance: TRAZODONE HYDROCHLORIDE
     Indication: NERVOUS SYSTEM DISORDER

REACTIONS (1)
  - Drug ineffective [Unknown]
